FAERS Safety Report 10182074 (Version 1)
Quarter: 2014Q2

REPORT INFORMATION
  Report Type: Spontaneous
  Country: TT (occurrence: TT)
  Receive Date: 20140520
  Receipt Date: 20140520
  Transmission Date: 20141212
  Serious: Yes (Other)
  Sender: FDA-Public Use
  Company Number: TT-ROCHE-1403218

PATIENT
  Sex: 0

DRUGS (4)
  1. AVASTIN [Suspect]
     Indication: LUNG NEOPLASM MALIGNANT
     Route: 065
  2. TARCEVA [Suspect]
     Indication: LUNG NEOPLASM MALIGNANT
     Route: 065
     Dates: end: 2014
  3. TAXOL [Concomitant]
     Route: 065
  4. CARBOPLATIN [Concomitant]

REACTIONS (4)
  - Cardiac fibrillation [Unknown]
  - Diarrhoea [Unknown]
  - Tachycardia [Unknown]
  - Disease progression [Unknown]
